FAERS Safety Report 12342021 (Version 5)
Quarter: 2016Q3

REPORT INFORMATION
  Report Type: Report from Study
  Country: US (occurrence: US)
  Receive Date: 20160506
  Receipt Date: 20160920
  Transmission Date: 20161109
  Serious: Yes (Death, Life-Threatening, Hospitalization, Disabling, Other)
  Sender: FDA-Public Use
  Company Number: US-ALEXION PHARMACEUTICALS INC-A201603225

PATIENT
  Age: 15 Month
  Sex: Female
  Weight: 9.5 kg

DRUGS (30)
  1. MILRINONE [Concomitant]
     Active Substance: MILRINONE
     Indication: PRODUCT USED FOR UNKNOWN INDICATION
     Dosage: 0.5 MCG/KG/MIN
     Route: 042
  2. EPOGEN [Concomitant]
     Active Substance: ERYTHROPOIETIN
     Indication: SUPPLEMENTATION THERAPY
     Dosage: 3000 UT, TIW
     Route: 058
  3. COREG [Concomitant]
     Active Substance: CARVEDILOL
     Dosage: UNK
     Route: 050
     Dates: start: 20100916, end: 20101027
  4. CALCIFEROL                         /00107901/ [Concomitant]
     Dosage: UNK
     Route: 050
     Dates: start: 20100610, end: 20101027
  5. CALCIUM CARBONATE. [Concomitant]
     Active Substance: CALCIUM CARBONATE
     Dosage: UNK
     Route: 050
     Dates: start: 20100908, end: 20101027
  6. NEPHRO VITE RX [Concomitant]
     Active Substance: ASCORBIC ACID\BIOTIN\CALCIUM PANTOTHENATE\CYANOCOBALAMIN\FOLIC ACID\NIACINAMIDE\PYRIDOXINE HYDROCHLORIDE\RIBOFLAVIN\THIAMINE MONONITRATE
     Dosage: UNK
     Route: 050
     Dates: start: 20100610, end: 20101027
  7. COREG [Concomitant]
     Active Substance: CARVEDILOL
     Indication: CARDIAC FAILURE
     Dosage: 1 MG, BID
     Route: 050
  8. KCL [Concomitant]
     Active Substance: POTASSIUM CHLORIDE
     Indication: HYPOKALAEMIA
     Dosage: 1.12 ML, TID
     Route: 065
  9. EPOGEN [Concomitant]
     Active Substance: ERYTHROPOIETIN
     Dosage: UNK
     Route: 050
     Dates: start: 20100817, end: 20101027
  10. CARNITOR [Concomitant]
     Active Substance: LEVOCARNITINE
     Dosage: UNK
     Route: 050
     Dates: start: 20100916, end: 20101027
  11. ECULIZUMAB [Suspect]
     Active Substance: ECULIZUMAB
     Indication: HAEMOLYTIC URAEMIC SYNDROME
     Dosage: UNK
     Route: 042
     Dates: end: 20091209
  12. REVATIO [Concomitant]
     Active Substance: SILDENAFIL CITRATE
     Indication: MUSCLE RELAXANT THERAPY
     Dosage: 2.8 ML, TID
     Route: 050
  13. CARNITOR [Concomitant]
     Active Substance: LEVOCARNITINE
     Indication: CARNITINE DEFICIENCY
     Dosage: 100 MG, TID
     Route: 050
  14. DIGOXIN. [Concomitant]
     Active Substance: DIGOXIN
     Indication: CARDIAC FAILURE
     Dosage: 0.1 MG, QD
     Route: 050
  15. ZOSYN [Concomitant]
     Active Substance: PIPERACILLIN SODIUM\TAZOBACTAM SODIUM
     Indication: SEPSIS
     Dosage: UNK
     Route: 042
     Dates: start: 20100717, end: 20100717
  16. NEPHRO VITE RX [Concomitant]
     Active Substance: ASCORBIC ACID\BIOTIN\CALCIUM PANTOTHENATE\CYANOCOBALAMIN\FOLIC ACID\NIACINAMIDE\PYRIDOXINE HYDROCHLORIDE\RIBOFLAVIN\THIAMINE MONONITRATE
     Indication: VITAMIN SUPPLEMENTATION
     Dosage: 1/2 TAB, QD
     Route: 065
  17. NACL [Concomitant]
     Active Substance: SODIUM CHLORIDE
     Indication: BLOOD SODIUM DECREASED
     Dosage: 2 ML, TID
     Route: 050
  18. CALCIUM CARBONATE. [Concomitant]
     Active Substance: CALCIUM CARBONATE
     Indication: SUPPLEMENTATION THERAPY
     Dosage: 10 ML, QD
     Route: 050
  19. LANSOPRAZOLE. [Concomitant]
     Active Substance: LANSOPRAZOLE
     Indication: PRODUCT USED FOR UNKNOWN INDICATION
     Dosage: 15 MG, QD
     Route: 050
  20. ERYTHROMYCIN ETHYLSUCCINATE. [Concomitant]
     Active Substance: ERYTHROMYCIN ETHYLSUCCINATE
     Indication: BACTERIAL INFECTION
     Dosage: 0.3 ML, QID
     Route: 050
  21. ERYTHROMYCIN ETHYLSUCCINATE. [Concomitant]
     Active Substance: ERYTHROMYCIN ETHYLSUCCINATE
     Dosage: UNK
     Route: 050
     Dates: start: 20100610, end: 20101027
  22. NACL [Concomitant]
     Active Substance: SODIUM CHLORIDE
     Dosage: 2.5MEQ/ML, INTRAVENOUS PARENTERAL SOLUTION
     Route: 050
     Dates: start: 20100506, end: 20101027
  23. KCL [Concomitant]
     Active Substance: POTASSIUM CHLORIDE
     Dosage: UNK
     Route: 050
     Dates: start: 20100506, end: 20101027
  24. CALCITRIOL. [Concomitant]
     Active Substance: CALCITRIOL
     Indication: HYPOCALCAEMIA
     Dosage: 1 ML, BID
     Route: 050
  25. REVATIO [Concomitant]
     Active Substance: SILDENAFIL CITRATE
     Dosage: UNK
     Route: 050
     Dates: start: 20100916, end: 20101027
  26. CALCIFEROL                         /00107901/ [Concomitant]
     Indication: VITAMIN SUPPLEMENTATION
     Dosage: 0.25 ML, QD
     Route: 065
  27. CALCITRIOL. [Concomitant]
     Active Substance: CALCITRIOL
     Dosage: UNK
     Route: 048
     Dates: start: 20100506, end: 20101027
  28. FERROUS SULFATE. [Concomitant]
     Active Substance: FERROUS SULFATE
     Indication: ANAEMIA
     Dosage: 1.3 ML, BID
     Route: 050
  29. FERROUS SULFATE. [Concomitant]
     Active Substance: FERROUS SULFATE
     Dosage: UNK
     Route: 050
     Dates: start: 20100610, end: 20101027
  30. DIGOXIN. [Concomitant]
     Active Substance: DIGOXIN
     Dosage: UNK
     Route: 050
     Dates: start: 20100610, end: 20101027

REACTIONS (2)
  - Multiple organ dysfunction syndrome [Fatal]
  - Sepsis [Fatal]

NARRATIVE: CASE EVENT DATE: 20101018
